FAERS Safety Report 5944719-X (Version None)
Quarter: 2008Q4

REPORT INFORMATION
  Report Type: 
  Country: None (occurrence: None)
  Receive Date: 20081107
  Receipt Date: 20081030
  Transmission Date: 20090506
  Serious: Yes (Hospitalization, Other)
  Sender: FDA-Public Use
  Company Number: US-AMGEN-QUU298754

PATIENT
  Sex: Female
  Weight: 59 kg

DRUGS (14)
  1. ENBREL [Suspect]
     Indication: RHEUMATOID ARTHRITIS
     Route: 058
     Dates: start: 20000101
  2. TRETINOIN [Concomitant]
     Route: 061
     Dates: start: 20071210
  3. FOSAMAX [Concomitant]
     Route: 048
     Dates: start: 20070904
  4. LOVAZA [Concomitant]
     Route: 048
     Dates: start: 20070731
  5. AZULFIDINE EN-TABS [Concomitant]
     Route: 048
     Dates: start: 20070508
  6. CYANOCOBALAMIN [Concomitant]
     Route: 048
     Dates: start: 20070424
  7. MULTI-VITAMINS [Concomitant]
     Route: 048
     Dates: start: 20070402
  8. CALCIUM WITH VITAMIN D [Concomitant]
     Route: 048
     Dates: start: 20070402
  9. PREDNISONE TAB [Concomitant]
     Route: 048
     Dates: start: 20070221, end: 20070515
  10. LIDODERM PATCH (ENDO PHARMACEUTICALS) [Concomitant]
     Dates: start: 20061207, end: 20070731
  11. NORCO [Concomitant]
     Route: 048
     Dates: start: 20061023, end: 20070330
  12. TYLENOL [Concomitant]
     Dates: start: 20050520, end: 20070627
  13. LYRICA [Concomitant]
     Route: 048
     Dates: start: 20070222, end: 20070330
  14. FUROSEMIDE [Concomitant]
     Route: 048
     Dates: start: 20061228, end: 20070515

REACTIONS (31)
  - ABDOMINAL TENDERNESS [None]
  - ANAEMIA OF CHRONIC DISEASE [None]
  - ANAL CANCER [None]
  - ANTITHROMBIN III DECREASED [None]
  - ARTHRALGIA [None]
  - BALANCE DISORDER [None]
  - CARDIAC MURMUR [None]
  - CATARACT [None]
  - COLONOSCOPY [None]
  - DEEP VEIN THROMBOSIS [None]
  - DEPRESSED MOOD [None]
  - DIARRHOEA [None]
  - DYSPNOEA EXERTIONAL [None]
  - ESCHERICHIA INFECTION [None]
  - FOOD AVERSION [None]
  - GASTROINTESTINAL PAIN [None]
  - OEDEMA PERIPHERAL [None]
  - PAIN [None]
  - PAIN IN EXTREMITY [None]
  - PALPITATIONS [None]
  - PARAESTHESIA [None]
  - PROTEIN S ABNORMAL [None]
  - PRURITUS [None]
  - PURPURA SENILE [None]
  - RASH MACULAR [None]
  - RHEUMATOID ARTHRITIS [None]
  - RHEUMATOID NODULE [None]
  - SINUS CONGESTION [None]
  - SKIN LESION [None]
  - THROMBOSIS [None]
  - WEIGHT DECREASED [None]
